FAERS Safety Report 9437234 (Version 1)
Quarter: 2013Q3

REPORT INFORMATION
  Report Type: Report from Study
  Country: VE (occurrence: VE)
  Receive Date: 20130802
  Receipt Date: 20130802
  Transmission Date: 20140515
  Serious: Yes (Death, Hospitalization, Other)
  Sender: FDA-Public Use
  Company Number: PHHY2013VE082020

PATIENT
  Age: 46 Year
  Sex: Male

DRUGS (3)
  1. SANDOSTATIN [Suspect]
     Indication: NEUROENDOCRINE TUMOUR
     Dosage: 0.66 ML, EVERY 8 HOURS
     Route: 058
     Dates: start: 20130604
  2. SERTRALINE [Concomitant]
     Indication: BURNOUT SYNDROME
     Dosage: 50 MG,DAILY
     Route: 048
     Dates: start: 2009
  3. FLUIDAMIN [Concomitant]
     Dosage: UNK UKN, UNK
     Route: 042
     Dates: start: 201306, end: 201307

REACTIONS (2)
  - Respiratory arrest [Fatal]
  - Pleural effusion [Not Recovered/Not Resolved]
